FAERS Safety Report 20221825 (Version 1)
Quarter: 2021Q4

REPORT INFORMATION
  Report Type: Spontaneous
  Country: CN (occurrence: CN)
  Receive Date: 20211223
  Receipt Date: 20211223
  Transmission Date: 20220303
  Serious: Yes (Hospitalization)
  Sender: FDA-Public Use
  Company Number: CN-SA-SAC20211221000562

PATIENT
  Age: 49 Year
  Sex: Female
  Weight: 54 kg

DRUGS (6)
  1. HYDROXYCHLOROQUINE SULFATE [Suspect]
     Active Substance: HYDROXYCHLOROQUINE SULFATE
     Indication: Rheumatoid arthritis
     Dosage: 0.2 G, QD
     Route: 048
     Dates: start: 20210227, end: 20210427
  2. LEFLUNOMIDE [Suspect]
     Active Substance: LEFLUNOMIDE
     Indication: Rheumatoid arthritis
     Dosage: 10MG, TID
     Route: 048
     Dates: start: 20210227, end: 20210427
  3. LORATADINE [Suspect]
     Active Substance: LORATADINE
     Dosage: 1 DF
     Route: 048
  4. AMMONIUM GLYCYRRHIZATE\CYSTEINE HYDROCHLORIDE\GLYCINE [Concomitant]
     Active Substance: AMMONIUM GLYCYRRHIZATE\CYSTEINE HYDROCHLORIDE\GLYCINE
     Indication: Prophylaxis
     Dosage: 2 DF
  5. SILIBININ [Concomitant]
     Active Substance: SILIBININ
     Indication: Prophylaxis
     Dosage: 3 DF, TID
     Route: 048
     Dates: start: 202112
  6. PHOSPHOLIPID [Concomitant]
     Active Substance: PHOSPHOLIPID
     Dosage: 465MG
     Route: 041
     Dates: start: 202112

REACTIONS (1)
  - Hepatic function abnormal [Recovering/Resolving]

NARRATIVE: CASE EVENT DATE: 20210417
